FAERS Safety Report 6116038-2 (Version None)
Quarter: 2009Q1

REPORT INFORMATION
  Report Type: 
  Country: None (occurrence: None)
  Receive Date: 20090314
  Receipt Date: 20081211
  Transmission Date: 20090719
  Serious: No
  Sender: FDA-Public Use
  Company Number: US-ABBOTT-08P-163-0492531-00

PATIENT
  Sex: Female

DRUGS (10)
  1. HUMIRA [Suspect]
     Indication: PSORIASIS
     Route: 058
     Dates: start: 20081209
  2. HUMIRA [Suspect]
     Indication: PSORIATIC ARTHROPATHY
  3. ASPIRIN [Concomitant]
     Indication: CARDIAC DISORDER
  4. METOPROLOL TARTRATE [Concomitant]
     Indication: HYPERTENSION
  5. ZOCOR [Concomitant]
     Indication: BLOOD CHOLESTEROL INCREASED
  6. KEFLEX [Concomitant]
     Indication: CYSTITIS
  7. PREDNISONE [Concomitant]
     Indication: PRURITUS
     Route: 048
  8. PREDNISONE [Concomitant]
     Indication: PSORIASIS
  9. ATARAX [Concomitant]
     Indication: PRURITUS
  10. PLENDIL [Concomitant]
     Indication: HYPERTENSION

REACTIONS (1)
  - INJECTION SITE PAIN [None]
